FAERS Safety Report 25008188 (Version 1)
Quarter: 2025Q1

REPORT INFORMATION
  Report Type: Spontaneous
  Country: US (occurrence: US)
  Receive Date: 20250225
  Receipt Date: 20250225
  Transmission Date: 20250408
  Serious: Yes (Death, Life-Threatening, Hospitalization)
  Sender: ACCORD
  Company Number: US-Accord-471192

PATIENT
  Age: 27 Year
  Sex: Male

DRUGS (2)
  1. METHOTREXATE [Suspect]
     Active Substance: METHOTREXATE
     Indication: Crohn^s disease
     Route: 048
  2. INFLIXIMAB [Suspect]
     Active Substance: INFLIXIMAB
     Indication: Crohn^s disease

REACTIONS (16)
  - Acute hepatic failure [Fatal]
  - Hepatic encephalopathy [Fatal]
  - Haemodynamic instability [Fatal]
  - Disseminated varicella zoster virus infection [Fatal]
  - Acute kidney injury [Fatal]
  - Disseminated intravascular coagulation [Fatal]
  - Staphylococcal bacteraemia [Fatal]
  - Actinomyces bacteraemia [Fatal]
  - Tachyarrhythmia [Fatal]
  - Pneumonia viral [Fatal]
  - Proctitis viral [Fatal]
  - Portal vein thrombosis [Fatal]
  - Herpes zoster meningoencephalitis [Fatal]
  - Hepatitis viral [Fatal]
  - Multiple organ dysfunction syndrome [Fatal]
  - Off label use [Unknown]
